FAERS Safety Report 14686264 (Version 1)
Quarter: 2018Q1

REPORT INFORMATION
  Report Type: Spontaneous
  Country: US (occurrence: US)
  Receive Date: 20180326
  Receipt Date: 20180326
  Transmission Date: 20180509
  Serious: Yes (Other)
  Sender: FDA-Public Use
  Company Number: None

PATIENT
  Age: 61 Year
  Sex: Male
  Weight: 76.5 kg

DRUGS (3)
  1. CIPROFLAXIN [Suspect]
     Active Substance: CIPROFLOXACIN
     Indication: PROSTATITIS
     Route: 048
     Dates: start: 20170201, end: 20170208
  2. MULTIVITAMIN [Concomitant]
     Active Substance: VITAMINS
  3. XANAS [Concomitant]

REACTIONS (5)
  - Joint injury [None]
  - Impaired healing [None]
  - Joint noise [None]
  - Diplopia [None]
  - Plantar fasciitis [None]

NARRATIVE: CASE EVENT DATE: 20180117
